FAERS Safety Report 4684330-4 (Version None)
Quarter: 2005Q2

REPORT INFORMATION
  Report Type: 
  Country: None (occurrence: None)
  Receive Date: 20050531
  Receipt Date: 20040930
  Transmission Date: 20051028
  Serious: Yes (Other)
  Sender: FDA-Public Use
  Company Number: USA041079854

PATIENT
  Age: 40 Year
  Sex: Male

DRUGS (2)
  1. ZYPREXA [Suspect]
     Indication: PSYCHOTIC DISORDER
     Dosage: 60 MG
  2. HALDOL (HALOPERIDOL DECANOATE) [Concomitant]

REACTIONS (11)
  - ASTHENIA [None]
  - CONSTIPATION [None]
  - DIZZINESS [None]
  - DRUG INTERACTION [None]
  - DRY MOUTH [None]
  - DYSPEPSIA [None]
  - FLAT AFFECT [None]
  - ORTHOSTATIC HYPOTENSION [None]
  - PRESCRIBED OVERDOSE [None]
  - TREMOR [None]
  - WEIGHT INCREASED [None]
